FAERS Safety Report 5090036-2 (Version None)
Quarter: 2006Q3

REPORT INFORMATION
  Report Type: 
  Country: None (occurrence: None)
  Receive Date: 20060828
  Receipt Date: 20060817
  Transmission Date: 20061208
  Serious: Yes (Hospitalization, Other)
  Sender: FDA-Public Use
  Company Number: US-JNJFOC-20060602993

PATIENT
  Sex: Female
  Weight: 80.74 kg

DRUGS (5)
  1. DURAGESIC-100 [Suspect]
     Indication: PAIN
     Dosage: ON DRURAGESIC FOR 4 YEARS.
     Route: 062
  2. ENALAPRIL [Concomitant]
     Indication: HYPERTENSION
     Route: 048
  3. ATENOLOL [Concomitant]
     Indication: HYPERTENSION
     Route: 048
  4. LEXAPRO [Concomitant]
     Indication: DEPRESSION
     Route: 065
  5. CLONAZEPAM [Concomitant]
     Indication: DEPRESSION
     Route: 065

REACTIONS (5)
  - DEPRESSION [None]
  - DIABETES MELLITUS [None]
  - FALL [None]
  - FOOT FRACTURE [None]
  - LOCALISED INFECTION [None]
